FAERS Safety Report 7378870-7 (Version None)
Quarter: 2011Q1

REPORT INFORMATION
  Report Type: 
  Country: None (occurrence: None)
  Receive Date: 20110328
  Receipt Date: 20110321
  Transmission Date: 20110831
  Serious: Yes (Death, Hospitalization)
  Sender: FDA-Public Use
  Company Number: PHHO2011US05152

PATIENT
  Sex: Female
  Weight: 61 kg

DRUGS (21)
  1. VFEND [Concomitant]
  2. ZOFRAN [Concomitant]
  3. DILAUDID [Concomitant]
  4. VELCADE [Concomitant]
  5. BACTRIM [Concomitant]
  6. VITAMIN D [Concomitant]
  7. ZESTRIL [Concomitant]
  8. CALCIUM CARBONATE [Concomitant]
  9. PREVACID [Concomitant]
  10. ALBUTEROL [Concomitant]
  11. AZITHROMYCIN [Concomitant]
  12. ACETAMINOPHEN [Concomitant]
  13. CODEINE [Concomitant]
  14. MEPACT [Concomitant]
  15. DOCUSATE [Concomitant]
  16. PRINIVIL [Concomitant]
  17. NEUPOGEN [Concomitant]
  18. IFOSFAMIDE [Concomitant]
  19. ALLEGRA [Concomitant]
  20. ZOMETA [Suspect]
     Indication: BONE SARCOMA
     Dosage: UNK
  21. ATIVAN [Concomitant]

REACTIONS (7)
  - HYPOCALCAEMIA [None]
  - NAUSEA [None]
  - NEOPLASM MALIGNANT [None]
  - HYPOPHOSPHATAEMIA [None]
  - HYPOKALAEMIA [None]
  - DIARRHOEA [None]
  - DEHYDRATION [None]
